FAERS Safety Report 8573413-4 (Version None)
Quarter: 2012Q2

REPORT INFORMATION
  Report Type: 
  Country: None (occurrence: None)
  Receive Date: 20120423
  Receipt Date: 20100301
  Transmission Date: 20120825
  Serious: Yes (Other)
  Sender: FDA-Public Use
  Company Number: PHEH2009US15959

PATIENT
  Age: 45 Year
  Sex: Male

DRUGS (4)
  1. EXJADE [Suspect]
     Indication: IRON OVERLOAD
     Dosage: 750 MG, BID, ORAL
     Route: 048
     Dates: start: 20090901
  2. EXJADE [Suspect]
     Indication: SICKLE CELL ANAEMIA
     Dosage: 750 MG, BID, ORAL
     Route: 048
     Dates: start: 20090901
  3. PAXIL [Concomitant]
  4. XANAX [Concomitant]

REACTIONS (5)
  - RETICULOCYTE COUNT DECREASED [None]
  - PAIN [None]
  - HAEMOGLOBIN DECREASED [None]
  - FEELING ABNORMAL [None]
  - FATIGUE [None]
